FAERS Safety Report 4602498-2 (Version None)
Quarter: 2005Q1

REPORT INFORMATION
  Report Type: 
  Country: None (occurrence: None)
  Receive Date: 20050307
  Receipt Date: 20050222
  Transmission Date: 20050727
  Serious: Yes (Other)
  Sender: FDA-Public Use
  Company Number: 2005036924

PATIENT
  Sex: Female
  Weight: 63.5036 kg

DRUGS (3)
  1. NARDIL [Suspect]
     Indication: MAJOR DEPRESSION
     Dosage: 45 MG (15 MG, 1 IN 1 D), ORAL
     Route: 048
  2. VALERIAN ROOT (VALERIANA OFICINALIS ROOT) [Suspect]
     Indication: SLEEP DISORDER
     Dosage: 45 MG (15 MG, 1 IN 1 D), ORAL
     Route: 048
  3. ALL OTHER NON-THERAPEUTIC PRODUCTS (ALL OTHER NON-THERAPEUTIC PRODUCTS [Suspect]
     Indication: ILL-DEFINED DISORDER
     Dosage: ORAL
     Route: 048

REACTIONS (9)
  - DIZZINESS [None]
  - DRUG INEFFECTIVE [None]
  - FEELING ABNORMAL [None]
  - INTERVERTEBRAL DISC PROTRUSION [None]
  - LIBIDO DECREASED [None]
  - ORGASM ABNORMAL [None]
  - PAIN IN EXTREMITY [None]
  - SCOLIOSIS [None]
  - SLEEP DISORDER [None]
